FAERS Safety Report 4520300-4 (Version None)
Quarter: 2004Q4

REPORT INFORMATION
  Report Type: 
  Country: None (occurrence: None)
  Receive Date: 20041203
  Receipt Date: 20041203
  Transmission Date: 20050328
  Serious: No
  Sender: FDA-Public Use
  Company Number: None

PATIENT
  Sex: Male
  Weight: 65.7716 kg

DRUGS (1)
  1. GEMFIBROZIL [Suspect]
     Indication: BENIGN PROSTATIC HYPERPLASIA
     Dosage: 2 X PER DAY
     Dates: start: 20020101, end: 20040101

REACTIONS (4)
  - BENIGN PROSTATIC HYPERPLASIA [None]
  - PAIN [None]
  - PROSTATE INFECTION [None]
  - SENSATION OF PRESSURE [None]
